FAERS Safety Report 18198970 (Version 1)
Quarter: 2020Q3

REPORT INFORMATION
  Report Type: Report from Study
  Country: IT (occurrence: IT)
  Receive Date: 20200826
  Receipt Date: 20200826
  Transmission Date: 20201103
  Serious: Yes (Other)
  Sender: FDA-Public Use
  Company Number: IT-TEVA-2020-IT-1817980

PATIENT
  Age: 11 Year
  Sex: Male

DRUGS (1)
  1. AMOXICILLIN W/CLAVULANIC ACID [Suspect]
     Active Substance: AMOXICILLIN\CLAVULANIC ACID
     Indication: INFECTIOUS MONONUCLEOSIS
     Route: 065

REACTIONS (2)
  - Rash maculo-papular [Unknown]
  - Drug reaction with eosinophilia and systemic symptoms [Unknown]
